FAERS Safety Report 13129463 (Version 1)
Quarter: 2017Q1

REPORT INFORMATION
  Report Type: Report from Study
  Country: ES (occurrence: ES)
  Receive Date: 20170119
  Receipt Date: 20170119
  Transmission Date: 20170428
  Serious: Yes (Death, Other)
  Sender: FDA-Public Use
  Company Number: ES-ACCORD-047405

PATIENT
  Age: 71 Year
  Sex: Male

DRUGS (13)
  1. ETOPOSIDE. [Suspect]
     Active Substance: ETOPOSIDE
     Indication: LUNG NEOPLASM MALIGNANT
     Route: 042
     Dates: start: 20160919, end: 20160922
  2. FORTECORTIN [Concomitant]
     Active Substance: DEXAMETHASONE
     Dosage: 1-0-0  FORTECORTIN 2MG/12H .
  3. CARBOPLATIN ACCORD [Suspect]
     Active Substance: CARBOPLATIN
     Indication: LUNG NEOPLASM MALIGNANT
     Dosage: 10 MG/ML
     Route: 042
     Dates: start: 20160919, end: 20160919
  4. ADIRO [Concomitant]
     Active Substance: ASPIRIN
     Dosage: 0-0-1
  5. CALCIUM SANDOZ [Concomitant]
     Active Substance: CALCIUM
     Dosage: 16-0-0 ,??CALCIUM SANDOZ 1000/880
  6. TARGIN [Concomitant]
     Active Substance: NALOXONE HYDROCHLORIDE\OXYCODONE HYDROCHLORIDE
     Dosage: 40 MG/20 MG
  7. BELOKEN RETARD [Concomitant]
     Active Substance: METOPROLOL TARTRATE
     Dosage: 1-0-0
  8. ENEAS [Concomitant]
     Active Substance: ENALAPRIL MALEATE\NITRENDIPINE
     Dosage: 1-0-0 , 10/20 MG
  9. OMEPRAZOLE. [Concomitant]
     Active Substance: OMEPRAZOLE
     Dosage: 1-0-0
  10. DUODART [Concomitant]
     Active Substance: DUTASTERIDE\TAMSULOSIN
     Dosage: 1-1-1
  11. LANTUS [Concomitant]
     Active Substance: INSULIN GLARGINE
     Dosage: 0-1-0
  12. LYRICA [Concomitant]
     Active Substance: PREGABALIN
     Dosage: 2-2-2 - LYRICAN 150-150
  13. AMERIDE (GLIMEPIRIDE) [Concomitant]
     Active Substance: GLIMEPIRIDE
     Dosage: 5/50 MG

REACTIONS (5)
  - Bicytopenia [Fatal]
  - Respiratory alkalosis [Unknown]
  - Confusional state [Unknown]
  - Diarrhoea [Recovered/Resolved]
  - Haematuria [Unknown]

NARRATIVE: CASE EVENT DATE: 20160927
